FAERS Safety Report 24210828 (Version 1)
Quarter: 2024Q3

REPORT INFORMATION
  Report Type: Other
  Country: IR (occurrence: IR)
  Receive Date: 20240814
  Receipt Date: 20240814
  Transmission Date: 20241016
  Serious: Yes (Hospitalization, Other)
  Sender: DEXCEL
  Company Number: IR-DEXPHARM-2024-2762

PATIENT
  Age: 51 Year
  Sex: Male

DRUGS (1)
  1. DICLOFENAC [Suspect]
     Active Substance: DICLOFENAC
     Indication: Back pain
     Dosage: INTRAMUSCULAR (IM) DICLOFENAC INJECTION.

REACTIONS (2)
  - Kounis syndrome [Recovered/Resolved]
  - Angina unstable [Recovered/Resolved]
